FAERS Safety Report 16110107 (Version 1)
Quarter: 2019Q1

REPORT INFORMATION
  Report Type: Spontaneous
  Country: PL (occurrence: PL)
  Receive Date: 20190325
  Receipt Date: 20190325
  Transmission Date: 20190418
  Serious: Yes (Death)
  Sender: FDA-Public Use
  Company Number: PL-ACCORD-114526

PATIENT
  Age: 62 Year
  Sex: Female
  Weight: 53 kg

DRUGS (1)
  1. METHOTREXATE. [Suspect]
     Active Substance: METHOTREXATE
     Indication: RHEUMATOID ARTHRITIS
     Dates: start: 20181010

REACTIONS (14)
  - Anuria [Fatal]
  - Haemorrhage subcutaneous [Fatal]
  - Cardiac failure [Fatal]
  - Agranulocytosis [Fatal]
  - Upper gastrointestinal haemorrhage [Fatal]
  - Anaemia [Fatal]
  - Diarrhoea [Fatal]
  - Erythema [Fatal]
  - Stomatitis [Fatal]
  - End stage renal disease [Fatal]
  - Skin discolouration [Fatal]
  - Thrombocytopenia [Fatal]
  - Skin ulcer [Fatal]
  - Mouth haemorrhage [Fatal]
